FAERS Safety Report 5204564-X (Version None)
Quarter: 2007Q1

REPORT INFORMATION
  Report Type: 
  Country: None (occurrence: None)
  Receive Date: 20070110
  Receipt Date: 20060510
  Transmission Date: 20070707
  Serious: No
  Sender: FDA-Public Use
  Company Number: US-BRISTOL-MYERS SQUIBB COMPANY-13373253

PATIENT
  Age: 53 Year
  Sex: Female
  Weight: 61 kg

DRUGS (2)
  1. ABILIFY [Suspect]
     Indication: DEPRESSION
     Route: 048
     Dates: start: 20051101
  2. DESIPRAMINE HCL [Concomitant]
     Dosage: REDUCED TO 125 MG/D ON 26-APR-2006.

REACTIONS (3)
  - DYSPHEMIA [None]
  - MUSCULAR WEAKNESS [None]
  - TREMOR [None]
